FAERS Safety Report 6483309-X (Version None)
Quarter: 2009Q4

REPORT INFORMATION
  Report Type: 
  Country: None (occurrence: None)
  Receive Date: 20091209
  Receipt Date: 20090423
  Transmission Date: 20100525
  Serious: No
  Sender: FDA-Public Use
  Company Number: US-AMGEN-KDL344445

PATIENT
  Sex: Female

DRUGS (4)
  1. ENBREL [Suspect]
     Indication: RHEUMATOID ARTHRITIS
     Route: 058
     Dates: start: 20070414
  2. PREDNISONE [Concomitant]
  3. VITAMIN TAB [Concomitant]
     Route: 048
  4. FOLIC ACID [Concomitant]
     Route: 048

REACTIONS (1)
  - RHEUMATOID ARTHRITIS [None]
